FAERS Safety Report 13659437 (Version 2)
Quarter: 2017Q3

REPORT INFORMATION
  Report Type: Report from Study
  Country: GB (occurrence: GB)
  Receive Date: 20170616
  Receipt Date: 20170904
  Transmission Date: 20171127
  Serious: Yes (Other)
  Sender: FDA-Public Use
  Company Number: GB-JNJFOC-20170607077

PATIENT
  Sex: Male

DRUGS (1)
  1. STELARA [Suspect]
     Active Substance: USTEKINUMAB
     Indication: PSORIASIS
     Route: 058

REACTIONS (4)
  - Blister infected [Unknown]
  - Localised infection [Unknown]
  - Post thrombotic syndrome [Unknown]
  - Cellulitis [Unknown]

NARRATIVE: CASE EVENT DATE: 2017
